FAERS Safety Report 5535130-4 (Version None)
Quarter: 2007Q4

REPORT INFORMATION
  Report Type: 
  Country: None (occurrence: None)
  Receive Date: 20071203
  Receipt Date: 20071116
  Transmission Date: 20080405
  Serious: Yes (Hospitalization, Disabling, Other)
  Sender: FDA-Public Use
  Company Number: 100#03#2007-04833

PATIENT
  Age: 61 Year
  Sex: Female

DRUGS (4)
  1. CARBOPLATIN [Suspect]
     Indication: OVARIAN CANCER
     Dosage: 490, INTRAVENOUS
     Route: 042
     Dates: start: 20060310, end: 20060602
  2. DOXORUBICIN HCL [Suspect]
     Dosage: INTRAVENOUS
     Route: 042
  3. DEXAMETHASONE TAB [Concomitant]
  4. ONDANSETRON HCL [Concomitant]

REACTIONS (1)
  - CEREBROVASCULAR ACCIDENT [None]
